FAERS Safety Report 18864544 (Version 1)
Quarter: 2021Q1

REPORT INFORMATION
  Report Type: Spontaneous
  Country: US (occurrence: US)
  Receive Date: 20210208
  Receipt Date: 20210208
  Transmission Date: 20210420
  Serious: No
  Sender: FDA-Public Use
  Company Number: None

PATIENT
  Age: 52 Year
  Sex: Female
  Weight: 74.25 kg

DRUGS (1)
  1. BAMLANIVIMAB. [Suspect]
     Active Substance: BAMLANIVIMAB
     Indication: COVID-19
     Route: 042
     Dates: start: 20210118, end: 20210118

REACTIONS (5)
  - Dry skin [None]
  - Skin fissures [None]
  - Skin irritation [None]
  - Erythema [None]
  - Genital discomfort [None]

NARRATIVE: CASE EVENT DATE: 20210118
